FAERS Safety Report 10647764 (Version 2)
Quarter: 2018Q3

REPORT INFORMATION
  Report Type: Spontaneous
  Country: US (occurrence: US)
  Receive Date: 20141212
  Receipt Date: 20180716
  Transmission Date: 20181010
  Serious: No
  Sender: FDA-Public Use
  Company Number: US-009507513-1412USA006113

PATIENT
  Age: 37 Year
  Sex: Female

DRUGS (5)
  1. EMTRICITABINE (+) TENOFOVIR DISOPROXIL FUMARATE [Suspect]
     Active Substance: EMTRICITABINE\TENOFOVIR DISOPROXIL
     Dosage: 1 TOTAL DAILY DOSE
     Route: 048
  2. ABACAVIR SULFATE (+) LAMIVUDINE [Suspect]
     Active Substance: ABACAVIR SULFATE\LAMIVUDINE
     Dosage: 1 TOTAL DAILY DOSE
     Route: 048
  3. ISENTRESS [Suspect]
     Active Substance: RALTEGRAVIR POTASSIUM
     Dosage: 400 TOTAL DAILY DOSE
     Route: 048
  4. LOPINAVIR (+) RITONAVIR [Suspect]
     Active Substance: LOPINAVIR\RITONAVIR
     Dosage: 400 TOTAL DAILY DOSE
     Route: 048
  5. ABACAVIR SULFATE (+) LAMIVUDINE (+) ZIDOVUDINE [Suspect]
     Active Substance: ABACAVIR SULFATE\LAMIVUDINE\ZIDOVUDINE
     Dosage: 2 TOTAL DAILY DOSE, UNK
     Route: 048

REACTIONS (1)
  - Maternal exposure during pregnancy [Recovered/Resolved]
